FAERS Safety Report 6417504-2 (Version None)
Quarter: 2009Q4

REPORT INFORMATION
  Report Type: 
  Country: None (occurrence: None)
  Receive Date: 20091026
  Receipt Date: 20091013
  Transmission Date: 20100525
  Serious: Yes (Other)
  Sender: FDA-Public Use
  Company Number: ADR38112009

PATIENT
  Age: 63 Year
  Sex: Male

DRUGS (2)
  1. SIMVASTATIN [Suspect]
     Dosage: 20 MG
  2. ATORVASTATIN [Concomitant]

REACTIONS (11)
  - BALANCE DISORDER [None]
  - DEPRESSION [None]
  - DIARRHOEA [None]
  - ERECTILE DYSFUNCTION [None]
  - FATIGUE [None]
  - IRRITABILITY [None]
  - MALAISE [None]
  - MEMORY IMPAIRMENT [None]
  - MOOD ALTERED [None]
  - MYALGIA [None]
  - NAUSEA [None]
